FAERS Safety Report 7779686-X (Version None)
Quarter: 2011Q3

REPORT INFORMATION
  Report Type: 
  Country: None (occurrence: None)
  Receive Date: 20110927
  Receipt Date: 20101020
  Transmission Date: 20111222
  Serious: Yes (Hospitalization, Other)
  Sender: FDA-Public Use
  Company Number: US-BAYER-201028066NA

PATIENT
  Age: 48 Year
  Sex: Female
  Weight: 84 kg

DRUGS (3)
  1. YAZ [Suspect]
     Dosage: UNK UNK, UNK
     Route: 048
     Dates: start: 20060824, end: 20060919
  2. ASPIRIN [Concomitant]
     Dosage: 81 MG, UNK
     Dates: start: 20060101
  3. ESTROSTEP [Concomitant]
     Dosage: UNK
     Dates: end: 20060823

REACTIONS (9)
  - SWELLING [None]
  - PELVIC VENOUS THROMBOSIS [None]
  - HAEMATOMA [None]
  - OEDEMA PERIPHERAL [None]
  - PAIN [None]
  - INSOMNIA [None]
  - DEEP VEIN THROMBOSIS [None]
  - RASH MACULAR [None]
  - UNEVALUABLE EVENT [None]
